FAERS Safety Report 9171049 (Version 1)
Quarter: 2013Q1

REPORT INFORMATION
  Report Type: Spontaneous
  Country: IT (occurrence: IT)
  Receive Date: 20130319
  Receipt Date: 20130319
  Transmission Date: 20140127
  Serious: Yes (Other)
  Sender: FDA-Public Use
  Company Number: IT-BRISTOL-MYERS SQUIBB COMPANY-17469479

PATIENT
  Age: 86 Year
  Sex: Female

DRUGS (3)
  1. COUMADIN TABS 5 MG [Suspect]
     Dosage: INTERRUPTED ON 05MAR13
     Dates: start: 20130218
  2. LANOXIN [Concomitant]
     Dosage: TABS
  3. DIURESIX [Concomitant]
     Dosage: TABS

REACTIONS (1)
  - Phlebitis [Recovering/Resolving]
